FAERS Safety Report 8919173 (Version 2)
Quarter: 2013Q1

REPORT INFORMATION
  Report Type: Spontaneous
  Country: JP (occurrence: JP)
  Receive Date: 20121121
  Receipt Date: 20130307
  Transmission Date: 20140127
  Serious: Yes (Hospitalization)
  Sender: FDA-Public Use
  Company Number: JP-ELI_LILLY_AND_COMPANY-JP201208000857

PATIENT
  Age: 74 Year
  Sex: Female

DRUGS (3)
  1. FORTEO [Suspect]
     Dosage: UNK UNK, EACH EVENING
     Route: 058
     Dates: start: 20120716, end: 20120907
  2. JUVELA [Concomitant]
  3. FLUITRAN [Concomitant]
     Indication: BLOOD PRESSURE INCREASED
     Dosage: UNK
     Route: 048
     Dates: start: 2002

REACTIONS (12)
  - Fracture [Unknown]
  - Groin pain [Not Recovered/Not Resolved]
  - Pain in extremity [Unknown]
  - Arthralgia [Not Recovered/Not Resolved]
  - Headache [Unknown]
  - Injection site paraesthesia [Unknown]
  - Injection site bruising [Unknown]
  - Body temperature increased [Unknown]
  - Myalgia [Unknown]
  - Blood pressure increased [Unknown]
  - Fall [Unknown]
  - Nausea [Unknown]
